FAERS Safety Report 5170131-X (Version None)
Quarter: 2006Q4

REPORT INFORMATION
  Report Type: 
  Country: None (occurrence: None)
  Receive Date: 20061201
  Receipt Date: 20061116
  Transmission Date: 20070319
  Serious: Yes (Hospitalization)
  Sender: FDA-Public Use
  Company Number: AZAUS200600352

PATIENT
  Age: 47 Year
  Sex: Female

DRUGS (10)
  1. VIDAZA [Suspect]
     Indication: MYELODYSPLASTIC SYNDROME
     Dosage: 40 MG/M2 (DAYS 1 TO 10, EVERY 28 DAYS), SUBCUTANEOUS
     Route: 058
     Dates: start: 20060807, end: 20060816
  2. MS-275 (INVESTIGATIONAL HISTONE DEACETYLASE INHIBITOR) (INVESTIGATIONA [Suspect]
     Indication: MYELODYSPLASTIC SYNDROME
     Dosage: 4 MG/M2 (DAYS 3 AND 10, EVERY 28 DAYS), ORAL
     Route: 048
     Dates: start: 20060809, end: 20060816
  3. AMBISOME [Concomitant]
  4. NORFLOXACIN [Concomitant]
  5. ZOFRAN [Concomitant]
  6. REGLAN [Concomitant]
  7. BENADRYL [Concomitant]
  8. PROTONIX [Concomitant]
  9. TYLENOL [Concomitant]
  10. ATIVAN [Concomitant]

REACTIONS (24)
  - ATELECTASIS [None]
  - CARDIAC ARREST [None]
  - CAROTID ARTERY ANEURYSM [None]
  - CAROTID ARTERY ATHEROMA [None]
  - CONSTIPATION [None]
  - ELECTROCARDIOGRAM QT CORRECTED INTERVAL PROLONGED [None]
  - FEBRILE NEUTROPENIA [None]
  - HYPOKALAEMIA [None]
  - HYPOMAGNESAEMIA [None]
  - INTRACRANIAL ANEURYSM [None]
  - LOSS OF CONSCIOUSNESS [None]
  - MEMORY IMPAIRMENT [None]
  - MUSCLE RIGIDITY [None]
  - NAUSEA [None]
  - PNEUMONIA FUNGAL [None]
  - SINUS ARRHYTHMIA [None]
  - SINUS BRADYCARDIA [None]
  - STATUS EPILEPTICUS [None]
  - SYNCOPE [None]
  - TRANSAMINASES INCREASED [None]
  - VENTRICULAR EXTRASYSTOLES [None]
  - VENTRICULAR FIBRILLATION [None]
  - VENTRICULAR HYPERTROPHY [None]
  - VOMITING [None]
